FAERS Safety Report 9279658 (Version 2)
Quarter: 2013Q2

REPORT INFORMATION
  Report Type: Spontaneous
  Country: US (occurrence: US)
  Receive Date: 20130509
  Receipt Date: 20130516
  Transmission Date: 20140414
  Serious: Yes (Hospitalization, Other)
  Sender: FDA-Public Use
  Company Number: US-BIOGENIDEC-2013BI040319

PATIENT
  Sex: Female

DRUGS (1)
  1. AVONEX [Suspect]
     Indication: MULTIPLE SCLEROSIS
     Route: 030
     Dates: start: 20121015

REACTIONS (5)
  - Ovarian cyst [Recovered/Resolved]
  - Ovarian cyst ruptured [Unknown]
  - Multiple sclerosis [Not Recovered/Not Resolved]
  - Chills [Recovered/Resolved]
  - Asthenia [Recovered/Resolved]
